FAERS Safety Report 24948351 (Version 1)
Quarter: 2025Q1

REPORT INFORMATION
  Report Type: Spontaneous
  Country: CN (occurrence: CN)
  Receive Date: 20250210
  Receipt Date: 20250210
  Transmission Date: 20250409
  Serious: Yes (Hospitalization, Other)
  Sender: RISING PHARMACEUTICALS
  Company Number: CN-RISINGPHARMA-CN-2025RISLIT00067

PATIENT
  Age: 72 Year
  Sex: Male

DRUGS (2)
  1. LIDOCAINE HYDROCHLORIDE [Suspect]
     Active Substance: LIDOCAINE HYDROCHLORIDE
     Indication: Local anaesthesia
     Route: 065
     Dates: start: 20240505
  2. TETANUS ANTITOXIN [Suspect]
     Active Substance: TETANUS ANTITOXIN
     Indication: Product used for unknown indication
     Route: 065

REACTIONS (9)
  - Anaphylactic shock [None]
  - Drug hypersensitivity [Recovering/Resolving]
  - Drug interaction [Unknown]
  - Dizziness [None]
  - Cold sweat [Recovering/Resolving]
  - Palpitations [Recovering/Resolving]
  - Sinus bradycardia [None]
  - Hypotension [None]
  - Tremor [None]

NARRATIVE: CASE EVENT DATE: 20240505
